FAERS Safety Report 17798115 (Version 1)
Quarter: 2020Q2

REPORT INFORMATION
  Report Type: Spontaneous
  Country: CN (occurrence: CN)
  Receive Date: 20200518
  Receipt Date: 20200518
  Transmission Date: 20200714
  Serious: Yes (Hospitalization, Other)
  Sender: FDA-Public Use
  Company Number: CN-BAYER-2020-080754

PATIENT
  Age: 27 Year
  Sex: Female

DRUGS (1)
  1. ULTRAVIST [Suspect]
     Active Substance: IOPROMIDE
     Indication: SCAN WITH CONTRAST
     Dosage: UNK
     Dates: start: 20190403, end: 20190403

REACTIONS (8)
  - Loss of consciousness [None]
  - Strabismus [None]
  - Seizure [None]
  - Carotid artery dissection [None]
  - Anaphylactic shock [None]
  - Cerebral infarction [None]
  - Dysphoria [None]
  - Foaming at mouth [None]

NARRATIVE: CASE EVENT DATE: 20190403
